FAERS Safety Report 10254552 (Version 1)
Quarter: 2014Q2

REPORT INFORMATION
  Report Type: Spontaneous
  Country: NL (occurrence: NL)
  Receive Date: 20140624
  Receipt Date: 20140624
  Transmission Date: 20141212
  Serious: Yes (Hospitalization)
  Sender: FDA-Public Use
  Company Number: NL-ACCORD-024388

PATIENT
  Age: 46 Year
  Sex: Male

DRUGS (9)
  1. SIMVASTATIN [Suspect]
     Indication: PRODUCT USED FOR UNKNOWN INDICATION
  2. METFORMIN [Concomitant]
  3. ENALAPRIL [Concomitant]
  4. OMEPRAZOLE [Concomitant]
  5. LACTULOSE [Concomitant]
  6. RIBAVIRIN [Concomitant]
     Indication: CHRONIC HEPATITIS C
  7. TELAPREVIR [Interacting]
     Indication: CHRONIC HEPATITIS C
  8. INTERFERON ALFA [Concomitant]
     Indication: CHRONIC HEPATITIS C
     Dosage: PEGYLATED INTERFERON ALFA
  9. HYDROCHLOROTHIAZIDE [Concomitant]

REACTIONS (3)
  - Rhabdomyolysis [Recovered/Resolved]
  - Bacterial infection [Unknown]
  - Drug interaction [Unknown]
